FAERS Safety Report 24699918 (Version 2)
Quarter: 2025Q4

REPORT INFORMATION
  Report Type: Spontaneous
  Country: US (occurrence: US)
  Receive Date: 20241205
  Receipt Date: 20251113
  Transmission Date: 20260118
  Serious: No
  Sender: ALIMERA
  Company Number: US-ALIMERA SCIENCES INC.-US-A16013-24-000249

PATIENT
  Age: 74 Year
  Sex: Female

DRUGS (2)
  1. YUTIQ [Suspect]
     Active Substance: FLUOCINOLONE ACETONIDE
     Indication: Uveitis
     Dosage: 0.18 MILLIGRAM, SINGLE - LEFT EYE
     Route: 031
     Dates: start: 20240229, end: 20240229
  2. YUTIQ [Suspect]
     Active Substance: FLUOCINOLONE ACETONIDE
     Dosage: 0.18 MILLIGRAM, SINGLE - LEFT EYE
     Route: 031
     Dates: start: 20240403

REACTIONS (7)
  - Macular oedema [Unknown]
  - Condition aggravated [Unknown]
  - Corneal oedema [Recovered/Resolved]
  - Device dislocation [Recovered/Resolved]
  - Device malfunction [Unknown]
  - Drug ineffective [Unknown]
  - Medical device removal [Recovered/Resolved]

NARRATIVE: CASE EVENT DATE: 20240229
